FAERS Safety Report 6227180-X (Version None)
Quarter: 2009Q2

REPORT INFORMATION
  Report Type: 
  Country: None (occurrence: None)
  Receive Date: 20090612
  Receipt Date: 20090601
  Transmission Date: 20091009
  Serious: Yes (Hospitalization)
  Sender: FDA-Public Use
  Company Number: AU-CELGENEUS-008-20785-09060097

PATIENT
  Sex: Female
  Weight: 55 kg

DRUGS (3)
  1. THALIDOMIDE [Suspect]
     Indication: MYELODYSPLASTIC SYNDROME
     Route: 048
     Dates: start: 20081202
  2. VIDAZA [Suspect]
     Indication: MYELODYSPLASTIC SYNDROME
     Route: 065
     Dates: start: 20081202, end: 20090531
  3. VIDAZA [Suspect]
     Route: 065

REACTIONS (4)
  - DRUG DOSE OMISSION [None]
  - HAEMOGLOBIN DECREASED [None]
  - HYPOTENSION [None]
  - SYNCOPE [None]
